FAERS Safety Report 18037871 (Version 1)
Quarter: 2020Q3

REPORT INFORMATION
  Report Type: Spontaneous
  Country: US (occurrence: US)
  Receive Date: 20200717
  Receipt Date: 20200717
  Transmission Date: 20201103
  Serious: Yes (Hospitalization)
  Sender: FDA-Public Use
  Company Number: US-ASTRAZENECA-2020SE89112

PATIENT
  Age: 1031 Month
  Sex: Male

DRUGS (2)
  1. PLAVIX [Concomitant]
     Active Substance: CLOPIDOGREL BISULFATE
     Indication: ANTICOAGULANT THERAPY
     Route: 065
  2. CALQUENCE [Suspect]
     Active Substance: ACALABRUTINIB
     Indication: LYMPHOMA
     Route: 048

REACTIONS (4)
  - White blood cell count decreased [Unknown]
  - Dizziness [Unknown]
  - Intentional product misuse [Unknown]
  - Fall [Unknown]

NARRATIVE: CASE EVENT DATE: 202006
